FAERS Safety Report 5467073-9 (Version None)
Quarter: 2007Q3

REPORT INFORMATION
  Report Type: 
  Country: None (occurrence: None)
  Receive Date: 20070920
  Receipt Date: 20070910
  Transmission Date: 20080115
  Serious: Yes (Life-Threatening, Other)
  Sender: FDA-Public Use
  Company Number: 17451

PATIENT
  Age: 4 Year
  Sex: Male

DRUGS (2)
  1. VINCRISTINE [Suspect]
     Indication: ACUTE LYMPHOCYTIC LEUKAEMIA
     Dosage: 1.5 MG/M2 FREQ
  2. ANTRHACYCLINE [Suspect]
     Indication: ACUTE LYMPHOCYTIC LEUKAEMIA

REACTIONS (3)
  - CARDIO-RESPIRATORY ARREST [None]
  - CRANIAL NEUROPATHY [None]
  - NEUROPATHY PERIPHERAL [None]
